FAERS Safety Report 6738649-3 (Version None)
Quarter: 2010Q2

REPORT INFORMATION
  Report Type: 
  Country: None (occurrence: None)
  Receive Date: 20100524
  Receipt Date: 20100513
  Transmission Date: 20101027
  Serious: No
  Sender: FDA-Public Use
  Company Number: US-B.I. PHARMACEUTICALS,INC./RIDGEFIELD-2010-BP-05551BP

PATIENT
  Sex: Female

DRUGS (4)
  1. SPIRIVA [Suspect]
     Indication: EMPHYSEMA
     Dosage: 18 MCG
     Route: 055
     Dates: start: 20090101
  2. COUMADIN [Concomitant]
     Indication: THROMBOSIS
  3. VERAPAMIL [Concomitant]
     Indication: ARRHYTHMIA
  4. XANAX [Concomitant]
     Indication: ANXIETY

REACTIONS (1)
  - DYSPNOEA [None]
